FAERS Safety Report 6495653-0 (Version None)
Quarter: 2009Q4

REPORT INFORMATION
  Report Type: 
  Country: None (occurrence: None)
  Receive Date: 20091214
  Receipt Date: 20090804
  Transmission Date: 20100525
  Serious: No
  Sender: FDA-Public Use
  Company Number: US-BRISTOL-MYERS SQUIBB COMPANY-14719645

PATIENT
  Age: 65 Year
  Sex: Female

DRUGS (4)
  1. ABILIFY [Suspect]
     Indication: MAJOR DEPRESSION
     Dosage: HELD APR09+RESUMED IN JUN09
     Route: 048
     Dates: start: 20090101
  2. TRAZODONE HCL [Suspect]
     Dosage: DISCONTINUED TRAZODONE.
  3. WELLBUTRIN SR [Concomitant]
  4. LEXAPRO [Concomitant]

REACTIONS (2)
  - BLOOD GLUCOSE INCREASED [None]
  - DRY MOUTH [None]
